FAERS Safety Report 8724962 (Version 2)
Quarter: 2015Q3

REPORT INFORMATION
  Report Type: Report from Study
  Country: US (occurrence: US)
  Receive Date: 20120815
  Receipt Date: 20150826
  Transmission Date: 20151125
  Serious: Yes (Death, Hospitalization)
  Sender: FDA-Public Use
  Company Number: US-ROCHE-1101325

PATIENT
  Age: 39 Year
  Sex: Female

DRUGS (4)
  1. CAPTOPRIL. [Concomitant]
     Active Substance: CAPTOPRIL
  2. ACTIVASE [Suspect]
     Active Substance: ALTEPLASE
     Indication: COLON CANCER
     Dosage: 3 MG/HR OF CONTINUES DRIP OVER 6 HOURS
     Route: 041
     Dates: start: 19991018, end: 19991022
  3. ACTIVASE [Suspect]
     Active Substance: ALTEPLASE
     Indication: COLON CANCER METASTATIC
     Route: 040
  4. TPN [Concomitant]
     Active Substance: AMINO ACIDS\DEXTROSE\ELECTROLYTES NOS\SOYBEAN OIL

REACTIONS (5)
  - Dehydration [Unknown]
  - Off label use [Unknown]
  - Catheter site discharge [Unknown]
  - Death [Fatal]
  - Electrolyte imbalance [Unknown]

NARRATIVE: CASE EVENT DATE: 19991222
